FAERS Safety Report 7898507-8 (Version None)
Quarter: 2011Q4

REPORT INFORMATION
  Report Type: 
  Country: None (occurrence: None)
  Receive Date: 20111107
  Receipt Date: 20111102
  Transmission Date: 20120403
  Serious: Yes (Other)
  Sender: FDA-Public Use
  Company Number: US-PFIZER INC-2011268668

PATIENT
  Sex: Female
  Weight: 68.027 kg

DRUGS (1)
  1. ZOLOFT [Suspect]
     Indication: DEPRESSION
     Dosage: 100 MG, 2X/DAY
     Route: 048
     Dates: start: 20090701, end: 20091101

REACTIONS (5)
  - INSOMNIA [None]
  - ANGER [None]
  - PERSONALITY CHANGE [None]
  - DEPRESSION [None]
  - LOSS OF CONSCIOUSNESS [None]
